FAERS Safety Report 6644837-7 (Version None)
Quarter: 2010Q1

REPORT INFORMATION
  Report Type: 
  Country: None (occurrence: None)
  Receive Date: 20100322
  Receipt Date: 20100310
  Transmission Date: 20100710
  Serious: Yes (Death)
  Sender: FDA-Public Use
  Company Number: GB-PFIZER INC-2010006356

PATIENT
  Age: 95 Year
  Sex: Female

DRUGS (1)
  1. CYKLOKAPRON [Suspect]
     Indication: HAEMORRHAGE
     Dosage: 100 MG, UNK
     Dates: start: 20091109, end: 20100206

REACTIONS (2)
  - DEATH [None]
  - PRODUCT QUALITY ISSUE [None]
